FAERS Safety Report 5964199-8 (Version None)
Quarter: 2008Q4

REPORT INFORMATION
  Report Type: 
  Country: None (occurrence: None)
  Receive Date: 20081124
  Receipt Date: 20081120
  Transmission Date: 20090506
  Serious: Yes (Other)
  Sender: FDA-Public Use
  Company Number: HQWYE361011AUG06

PATIENT
  Sex: Female

DRUGS (7)
  1. PREMARIN [Suspect]
  2. ESTRATEST [Suspect]
  3. PROGESTERONE [Suspect]
  4. VAGIFEM [Suspect]
  5. PREMARIN [Suspect]
  6. ESTRACE [Suspect]
  7. ESTRADIOL [Suspect]

REACTIONS (1)
  - BREAST CANCER METASTATIC [None]
